FAERS Safety Report 8839626 (Version 1)
Quarter: 2012Q4

REPORT INFORMATION
  Report Type: Spontaneous
  Country: US (occurrence: None)
  Receive Date: 20121012
  Receipt Date: 20121012
  Transmission Date: 20130627
  Serious: Yes (Hospitalization)
  Sender: FDA-Public Use
  Company Number: None

PATIENT
  Sex: Female
  Weight: 57.72 kg

DRUGS (3)
  1. CARBOPLATIN [Suspect]
     Dates: start: 20110623
  2. TAXOL [Suspect]
     Dates: start: 20110623
  3. COUMADIN [Concomitant]

REACTIONS (6)
  - Haematemesis [None]
  - Presyncope [None]
  - Febrile neutropenia [None]
  - Abdominal hernia [None]
  - International normalised ratio increased [None]
  - Post procedural discharge [None]
